FAERS Safety Report 8693955 (Version 2)
Quarter: 2013Q2

REPORT INFORMATION
  Report Type: Spontaneous
  Country: US (occurrence: US)
  Receive Date: 20120731
  Receipt Date: 20130522
  Transmission Date: 20140414
  Serious: Yes (Hospitalization, Other)
  Sender: FDA-Public Use
  Company Number: US-PFIZER INC-2012181342

PATIENT
  Age: 20 Year
  Sex: Female

DRUGS (2)
  1. CHANTIX [Suspect]
     Dosage: UNK
     Dates: start: 20090922, end: 20091129
  2. CHANTIX [Suspect]
     Dosage: 1 MG, UNK
     Dates: start: 20091029

REACTIONS (2)
  - Suicide attempt [Unknown]
  - Depression [Unknown]
